FAERS Safety Report 8167216 (Version 2)
Quarter: 2013Q2

REPORT INFORMATION
  Report Type: Spontaneous
  Country: CN (occurrence: None)
  Receive Date: 20110922
  Receipt Date: 20130503
  Transmission Date: 20140414
  Serious: Yes (Death)
  Sender: FDA-Public Use
  Company Number: JP-2011-11506

PATIENT
  Age: 51 Year
  Sex: Female

DRUGS (6)
  1. CILOSTAZOL [Suspect]
     Indication: DIABETIC NEPHROPATHY
     Dosage: 100 MG MILLIGRAM(S), BID, ORAL
     Route: 048
     Dates: start: 20100705, end: 20110913
  2. PROBUCOL [Suspect]
     Indication: DIABETIC NEPHROPATHY
     Dosage: 0.25 G GRAM(S), BID, ORAL
     Route: 048
     Dates: start: 20110705, end: 20110913
  3. ASPIRIN [Concomitant]
  4. METFORMIN HYDROCHLORIDE [Concomitant]
  5. CARVEDILOL (CARVEDILOL) [Concomitant]
  6. IRBESARTAN (IRBESARTAN) TABLET [Concomitant]

REACTIONS (1)
  - ACUTE MYOCARDIAL INFARCTION [None]
